FAERS Safety Report 15320294 (Version 1)
Quarter: 2018Q3

REPORT INFORMATION
  Report Type: Spontaneous
  Country: US (occurrence: US)
  Receive Date: 20180827
  Receipt Date: 20180827
  Transmission Date: 20181010
  Serious: No
  Sender: FDA-Public Use
  Company Number: US-BAYER-2018-160646

PATIENT
  Age: 1 Year
  Sex: Male

DRUGS (2)
  1. ZYRTEC [Concomitant]
     Active Substance: CETIRIZINE HYDROCHLORIDE
     Indication: RHINITIS ALLERGIC
     Dosage: 2.05 ML, UNK
     Dates: start: 201711
  2. MIRALAX [Suspect]
     Active Substance: POLYETHYLENE GLYCOL 3350
     Indication: CONSTIPATION
     Dosage: ;2TSP QAM MIXED IN DRINK
     Route: 048
     Dates: start: 201502, end: 201712

REACTIONS (2)
  - Psychomotor hyperactivity [Not Recovered/Not Resolved]
  - Speech disorder developmental [Not Recovered/Not Resolved]

NARRATIVE: CASE EVENT DATE: 201611
